FAERS Safety Report 24659100 (Version 1)
Quarter: 2024Q4

REPORT INFORMATION
  Report Type: Spontaneous
  Country: US (occurrence: US)
  Receive Date: 20241125
  Receipt Date: 20241125
  Transmission Date: 20250115
  Serious: No
  Sender: BRISTOL-MYERS SQUIBB COMPANY
  Company Number: US-BRISTOL-MYERS SQUIBB COMPANY-2024-183806

PATIENT
  Age: 79 Year
  Sex: Female

DRUGS (1)
  1. KRAZATI [Suspect]
     Active Substance: ADAGRASIB
     Indication: Product used for unknown indication
     Dosage: TAKE 3 TABLETS BY MOUTH TWICE DAILY WITH OR WITHOUTFOOD
     Route: 048

REACTIONS (7)
  - Drug hypersensitivity [Unknown]
  - Diarrhoea [Unknown]
  - Joint swelling [Unknown]
  - Vision blurred [Unknown]
  - Eye pruritus [Unknown]
  - Fatigue [Unknown]
  - Asthenopia [Unknown]

NARRATIVE: CASE EVENT DATE: 20241101
